FAERS Safety Report 9349461 (Version 1)
Quarter: 2013Q2

REPORT INFORMATION
  Report Type: Report from Study
  Country: FR (occurrence: FR)
  Receive Date: 20130614
  Receipt Date: 20130614
  Transmission Date: 20140414
  Serious: Yes (Hospitalization, Other)
  Sender: FDA-Public Use
  Company Number: FR-BAXTER-2013BAX021412

PATIENT
  Age: 10 Year
  Sex: Male
  Weight: 21.7 kg

DRUGS (27)
  1. HOLOXAN [Suspect]
     Indication: SARCOMA
     Route: 042
     Dates: start: 20091127
  2. HOLOXAN [Suspect]
     Route: 042
     Dates: start: 20091218
  3. BEVACIZUMAB [Suspect]
     Indication: SARCOMA
     Route: 042
     Dates: start: 20091127
  4. BEVACIZUMAB [Suspect]
     Route: 042
     Dates: start: 20091218
  5. BEVACIZUMAB [Suspect]
     Route: 042
     Dates: start: 20091127
  6. ACTINOMYCIN D [Suspect]
     Indication: SARCOMA
     Route: 042
     Dates: start: 20091127
  7. ACTINOMYCIN D [Suspect]
     Route: 042
     Dates: start: 20091218
  8. DOXORUBICIN [Suspect]
     Indication: SARCOMA
     Route: 042
     Dates: start: 20091127
  9. DOXORUBICIN [Suspect]
     Route: 042
     Dates: start: 20091218
  10. VINCRISTINE [Suspect]
     Indication: SARCOMA
     Route: 042
     Dates: start: 20091127
  11. VINCRISTINE [Suspect]
     Route: 042
     Dates: start: 20091204
  12. VINCRISTINE [Suspect]
     Dosage: 1.5 MH/MG^2
     Route: 042
     Dates: start: 20091127
  13. VINCRISTINE [Suspect]
     Route: 042
     Dates: start: 20091225
  14. TRAMADOL HYDROCHLORIDE [Concomitant]
     Indication: PRODUCT USED FOR UNKNOWN INDICATION
     Route: 065
     Dates: start: 20091205, end: 20091211
  15. NEURONTIN [Concomitant]
     Indication: PRODUCT USED FOR UNKNOWN INDICATION
     Route: 065
     Dates: start: 20091205, end: 20091211
  16. OMEPRAZOLE [Concomitant]
     Indication: PRODUCT USED FOR UNKNOWN INDICATION
     Route: 065
     Dates: start: 20091205, end: 20091211
  17. OMEPRAZOLE [Concomitant]
     Dates: start: 20091227
  18. LAROXYL [Concomitant]
     Indication: PRODUCT USED FOR UNKNOWN INDICATION
     Route: 065
     Dates: start: 20091203, end: 20091211
  19. PARACETAMOL [Concomitant]
     Indication: PRODUCT USED FOR UNKNOWN INDICATION
     Route: 065
     Dates: start: 20091205, end: 20091211
  20. MACROGOL [Concomitant]
     Indication: PRODUCT USED FOR UNKNOWN INDICATION
     Route: 065
     Dates: start: 20091205, end: 20091211
  21. TAZOCILLINE [Concomitant]
     Indication: PRODUCT USED FOR UNKNOWN INDICATION
     Route: 065
     Dates: start: 20091227
  22. TARGOCID [Concomitant]
     Indication: PRODUCT USED FOR UNKNOWN INDICATION
     Route: 065
     Dates: start: 20091227
  23. SUPROFEN [Concomitant]
     Indication: PRODUCT USED FOR UNKNOWN INDICATION
     Route: 065
     Dates: start: 20091227
  24. NEUPOGEN [Concomitant]
     Route: 065
     Dates: start: 20091227
  25. OXYCODONE [Concomitant]
     Indication: PRODUCT USED FOR UNKNOWN INDICATION
     Route: 065
     Dates: start: 200912
  26. MORPHINE [Concomitant]
     Indication: PRODUCT USED FOR UNKNOWN INDICATION
     Route: 065
     Dates: start: 20091205, end: 20091211
  27. METHYLPREDNISOLONE [Concomitant]
     Indication: PRODUCT USED FOR UNKNOWN INDICATION
     Route: 065
     Dates: start: 20091205, end: 20091211

REACTIONS (3)
  - Ileus paralytic [Recovered/Resolved]
  - Performance status decreased [Recovered/Resolved]
  - Febrile neutropenia [Recovered/Resolved]
